FAERS Safety Report 6505920-X (Version None)
Quarter: 2009Q4

REPORT INFORMATION
  Report Type: 
  Country: None (occurrence: None)
  Receive Date: 20091218
  Receipt Date: 20091215
  Transmission Date: 20100525
  Serious: Yes (Disabling)
  Sender: FDA-Public Use
  Company Number: US-MERCK-0905USA02193

PATIENT
  Age: 56 Year
  Sex: Female
  Weight: 87 kg

DRUGS (3)
  1. FOSAMAX [Suspect]
     Indication: MULTIPLE MYELOMA
     Route: 048
     Dates: start: 19960101, end: 20060101
  2. FOSAMAX [Suspect]
     Route: 048
     Dates: start: 19960101, end: 20060101
  3. XANAX [Concomitant]
     Indication: ANXIETY
     Route: 065
     Dates: start: 19870101

REACTIONS (13)
  - ALVEOLAR OSTEITIS [None]
  - APHTHOUS STOMATITIS [None]
  - CARPAL TUNNEL SYNDROME [None]
  - DRUG HYPERSENSITIVITY [None]
  - EXOSTOSIS [None]
  - HYPERTENSION [None]
  - IMPAIRED HEALING [None]
  - JAW DISORDER [None]
  - ORAL HERPES [None]
  - ORAL TORUS [None]
  - OSTEONECROSIS [None]
  - THYROID DISORDER [None]
  - TOOTH DISORDER [None]
